FAERS Safety Report 19119717 (Version 3)
Quarter: 2021Q2

REPORT INFORMATION
  Report Type: Spontaneous
  Country: US (occurrence: US)
  Receive Date: 20210412
  Receipt Date: 20210519
  Transmission Date: 20210717
  Serious: Yes (Hospitalization)
  Sender: FDA-Public Use
  Company Number: US-FARMAPROD-202102-0281

PATIENT
  Age: 85 Year
  Sex: Female

DRUGS (19)
  1. LIDOCAINE. [Concomitant]
     Active Substance: LIDOCAINE
     Dosage: PATCH
  2. VOLTAREN [Concomitant]
     Active Substance: DICLOFENAC SODIUM
  3. HYDROCORTISONE. [Concomitant]
     Active Substance: HYDROCORTISONE
  4. METHYLPREDNISOLONE. [Concomitant]
     Active Substance: METHYLPREDNISOLONE
  5. OMEPRAZOLE. [Concomitant]
     Active Substance: OMEPRAZOLE
  6. GENTEAL MILD [Concomitant]
     Active Substance: HYPROMELLOSE 2910 (4000 MPA.S)
  7. GABAPENTIN. [Concomitant]
     Active Substance: GABAPENTIN
  8. IPRATROPIUM [Concomitant]
     Active Substance: IPRATROPIUM
     Dosage: NASAL SPRAY
  9. IBUPROFEN. [Concomitant]
     Active Substance: IBUPROFEN
  10. AMLODIPINE [Concomitant]
     Active Substance: AMLODIPINE BESYLATE
     Dosage: 2 TABLETS DAILY
  11. SYSTANE (HYPROMELLOSE 2910 (4000 MPA.S)) [Concomitant]
     Active Substance: HYPROMELLOSE 2910 (4000 MPA.S)
  12. GABAPENTIN. [Concomitant]
     Active Substance: GABAPENTIN
  13. TRIAMTERENE/HYDROCHLOROTHIAZIDE [Concomitant]
     Active Substance: HYDROCHLOROTHIAZIDE\TRIAMTERENE
     Dosage: 37.5?25 MG
  14. OXYCODONE [Concomitant]
     Active Substance: OXYCODONE
  15. HYDROXYPROPYL CELLULOSE [Concomitant]
     Active Substance: HYDROXYPROPYL CELLULOSE
  16. OXYGEN. [Concomitant]
     Active Substance: OXYGEN
  17. THERATEARS [Concomitant]
     Active Substance: CARBOXYMETHYLCELLULOSE SODIUM
  18. OXERVATE [Suspect]
     Active Substance: CENEGERMIN-BKBJ
     Indication: NEUROTROPHIC KERATOPATHY
     Route: 047
     Dates: start: 20210211
  19. CLOBETASOL [Concomitant]
     Active Substance: CLOBETASOL

REACTIONS (2)
  - Back pain [Unknown]
  - Eye pain [Unknown]

NARRATIVE: CASE EVENT DATE: 20210327
